FAERS Safety Report 4305252-4 (Version None)
Quarter: 2004Q1

REPORT INFORMATION
  Report Type: 
  Country: None (occurrence: None)
  Receive Date: 20040226
  Receipt Date: 20031211
  Transmission Date: 20041129
  Serious: No
  Sender: FDA-Public Use
  Company Number: US-BRISTOL-MYERS SQUIBB COMPANY-12457024

PATIENT
  Age: 6 Decade
  Sex: Male

DRUGS (2)
  1. DEFINITY [Suspect]
     Indication: CARDIAC STRESS TEST
     Dosage: 2-2.5CC WAS GIVEN
     Route: 042
     Dates: start: 20031101, end: 20031101
  2. DOBUTAMINE [Suspect]

REACTIONS (2)
  - BACK PAIN [None]
  - FLANK PAIN [None]
